FAERS Safety Report 26042057 (Version 2)
Quarter: 2025Q4

REPORT INFORMATION
  Report Type: Report from Study
  Country: PR (occurrence: PR)
  Receive Date: 20251113
  Receipt Date: 20251115
  Transmission Date: 20260117
  Serious: Yes (Hospitalization)
  Sender: ABBVIE
  Company Number: US-ABBVIE-6526671

PATIENT
  Age: 66 Year
  Sex: Female
  Weight: 76.203 kg

DRUGS (2)
  1. SKYRIZI [Suspect]
     Active Substance: RISANKIZUMAB-RZAA
     Indication: Psoriasis
     Dosage: DOSE FROM- SOLUTION FOR INJECTION IN PRE-FILLED PEN ?FORM STRENGTH: 150 MG
     Route: 058
     Dates: start: 20250512
  2. CANDESARTAN [Concomitant]
     Active Substance: CANDESARTAN
     Indication: Blood pressure measurement
     Dosage: 32 MILLIGRAM

REACTIONS (3)
  - Diverticulitis [Recovered/Resolved]
  - Pyrexia [Recovered/Resolved]
  - Gastrointestinal pain [Recovered/Resolved]

NARRATIVE: CASE EVENT DATE: 20250916
